FAERS Safety Report 8397752-5 (Version None)
Quarter: 2012Q2

REPORT INFORMATION
  Report Type: 
  Country: None (occurrence: None)
  Receive Date: 20120531
  Receipt Date: 20120521
  Transmission Date: 20120825
  Serious: Yes (Life-Threatening, Hospitalization)
  Sender: FDA-Public Use
  Company Number: JP-MPIJNJ-2012-02879

PATIENT

DRUGS (10)
  1. MAGMITT [Concomitant]
     Indication: CONSTIPATION
     Dosage: 660 MG, UNK
     Route: 048
     Dates: start: 20120211
  2. OXINORM                            /00547301/ [Concomitant]
     Indication: BONE PAIN
     Dosage: 5 MG, UNK
     Route: 048
     Dates: start: 20120203
  3. VFEND [Concomitant]
     Indication: SYSTEMIC MYCOSIS
     Dosage: 150 MG, UNK
     Route: 048
     Dates: start: 20120326
  4. LANADEXON                          /00016001/ [Concomitant]
     Indication: MULTIPLE MYELOMA
     Dosage: 20 MG, UNK
     Route: 048
     Dates: start: 20120409, end: 20120419
  5. URSODIOL [Concomitant]
     Indication: LIVER DISORDER
     Dosage: 200 MG, UNK
     Route: 048
     Dates: start: 20120321
  6. VELCADE [Suspect]
     Indication: MULTIPLE MYELOMA
     Dosage: 2.1 MG, UNK
     Route: 042
     Dates: start: 20120409, end: 20120416
  7. FAMOTIDINE [Concomitant]
     Indication: PEPTIC ULCER
     Dosage: 20 MG, UNK
     Route: 048
     Dates: start: 20120314
  8. ACETAMINOPHEN [Concomitant]
     Indication: BONE PAIN
     Dosage: 400 MG, UNK
     Route: 048
     Dates: start: 20120404
  9. OXYCONTIN [Concomitant]
     Indication: BONE PAIN
     Dosage: 15 MG, UNK
     Route: 048
     Dates: start: 20120203
  10. KAYWAN [Concomitant]
     Indication: COAGULOPATHY
     Dosage: 20 MG, UNK
     Route: 048
     Dates: start: 20120321

REACTIONS (3)
  - NEUROPATHY PERIPHERAL [None]
  - POSTERIOR REVERSIBLE ENCEPHALOPATHY SYNDROME [None]
  - PLATELET COUNT DECREASED [None]
